FAERS Safety Report 5867650-7 (Version None)
Quarter: 2008Q3

REPORT INFORMATION
  Report Type: 
  Country: None (occurrence: None)
  Receive Date: 20080902
  Receipt Date: 20080822
  Transmission Date: 20090109
  Serious: Yes (Hospitalization)
  Sender: FDA-Public Use
  Company Number: US-JNJCH-2008021989

PATIENT
  Age: 44 Year
  Sex: Male
  Weight: 95.3 kg

DRUGS (3)
  1. ROGAINE 5% FOAM [Suspect]
     Indication: ALOPECIA
     Dosage: TEXT:^RECOMMEND DOSAGE^ TWICE A DAY
     Route: 061
     Dates: start: 20080615, end: 20080816
  2. OXYCONTIN [Concomitant]
     Indication: PAIN
     Dosage: TEXT:UNSPECIFIED
     Route: 065
  3. CORTICOSTEROID NOS [Concomitant]
     Indication: PAIN
     Dosage: TEXT:UNSPECIFIED
     Route: 065

REACTIONS (4)
  - FEELING ABNORMAL [None]
  - MUSCULOSKELETAL DISCOMFORT [None]
  - PALLOR [None]
  - RASH [None]
